FAERS Safety Report 9236124 (Version 1)
Quarter: 2013Q2

REPORT INFORMATION
  Report Type: Spontaneous
  Country: MX (occurrence: MX)
  Receive Date: 20130417
  Receipt Date: 20130417
  Transmission Date: 20140414
  Serious: Yes (Other)
  Sender: FDA-Public Use
  Company Number: PHHY2013MX037267

PATIENT
  Sex: Male

DRUGS (4)
  1. SIMULECT [Suspect]
     Dosage: UNK UKN, UNK
  2. CELLCEPT [Concomitant]
  3. TACRO [Concomitant]
  4. PREDNISONE [Concomitant]

REACTIONS (1)
  - Tubulointerstitial nephritis [Unknown]
